FAERS Safety Report 16375142 (Version 1)
Quarter: 2019Q2

REPORT INFORMATION
  Report Type: Spontaneous
  Country: US (occurrence: US)
  Receive Date: 20190531
  Receipt Date: 20190531
  Transmission Date: 20190711
  Serious: Yes (Hospitalization)
  Sender: FDA-Public Use
  Company Number: US-HIKMA PHARMACEUTICALS USA INC.-US-H14001-19-03558

PATIENT
  Age: 71 Year
  Sex: Female
  Weight: 82.9 kg

DRUGS (6)
  1. PREDNISONE. [Suspect]
     Active Substance: PREDNISONE
     Indication: GRAFT VERSUS HOST DISEASE
     Route: 065
     Dates: start: 20180714, end: 20180716
  2. INCB039110 [Suspect]
     Active Substance: ITACITINIB
     Indication: GRAFT VERSUS HOST DISEASE
     Route: 065
     Dates: start: 20180629, end: 20180708
  3. FLOMAX [Concomitant]
     Active Substance: TAMSULOSIN HYDROCHLORIDE
     Indication: PRODUCT USED FOR UNKNOWN INDICATION
     Route: 065
     Dates: start: 20180626, end: 20180712
  4. INCB039110 [Suspect]
     Active Substance: ITACITINIB
     Route: 065
     Dates: start: 20180708, end: 20180712
  5. PREDNISONE. [Suspect]
     Active Substance: PREDNISONE
     Route: 065
     Dates: start: 20180717
  6. METHYLPREDNISOLONE. [Suspect]
     Active Substance: METHYLPREDNISOLONE
     Indication: GRAFT VERSUS HOST DISEASE
     Route: 065
     Dates: start: 20180713

REACTIONS (4)
  - Platelet count decreased [Unknown]
  - Dizziness [Unknown]
  - Syncope [Unknown]
  - Full blood count decreased [Unknown]

NARRATIVE: CASE EVENT DATE: 201807
